FAERS Safety Report 9523791 (Version 1)
Quarter: 2013Q3

REPORT INFORMATION
  Report Type: Spontaneous
  Country: US (occurrence: None)
  Receive Date: 20130912
  Receipt Date: 20130912
  Transmission Date: 20140515
  Serious: Yes (Life-Threatening, Other)
  Sender: FDA-Public Use
  Company Number: 001444198A

PATIENT
  Age: 32 Year
  Sex: Female

DRUGS (2)
  1. MEANINGFUL BEAUTY ANTIOXIDANT DAY CREME WITH SPF 20 [Suspect]
     Dosage: DERMAL
     Route: 023
     Dates: start: 201211, end: 201212
  2. MEANINGFUL BEAUTY SKIN BRIGHTENING DECOLLETE NECK TREATMENT SPF.15 [Suspect]
     Dosage: DERMAL
     Dates: start: 201211, end: 20121211

REACTIONS (1)
  - Anaphylactic reaction [None]
